FAERS Safety Report 9469660 (Version 1)
Quarter: 2013Q3

REPORT INFORMATION
  Report Type: Spontaneous
  Country: US (occurrence: None)
  Receive Date: 20130820
  Receipt Date: 20130820
  Transmission Date: 20140515
  Serious: Yes (Death)
  Sender: FDA-Public Use
  Company Number: None

PATIENT
  Age: 67 Year
  Sex: Female

DRUGS (2)
  1. ABRAXANE [Suspect]
     Indication: BREAST CANCER METASTATIC
     Dates: start: 20130809
  2. ZOFRAN [Concomitant]

REACTIONS (8)
  - Loss of consciousness [None]
  - Confusional state [None]
  - Immediate post-injection reaction [None]
  - Alveolitis [None]
  - Hypotension [None]
  - Cardiac arrest [None]
  - Pulmonary oedema [None]
  - Pneumonitis [None]
